FAERS Safety Report 23357686 (Version 2)
Quarter: 2024Q1

REPORT INFORMATION
  Report Type: Spontaneous
  Country: IT (occurrence: IT)
  Receive Date: 20240102
  Receipt Date: 20240201
  Transmission Date: 20240410
  Serious: Yes (Life-Threatening, Other)
  Sender: FDA-Public Use
  Company Number: IT-SAMSUNG BIOEPIS-SB-2023-33472

PATIENT
  Age: 20 Year
  Sex: Male

DRUGS (10)
  1. PREDNISONE [Suspect]
     Active Substance: PREDNISONE
     Indication: Still^s disease
     Dosage: 0.15 MILLIGRAM/KILOGRAM, QD
     Route: 048
  2. METHOTREXATE SODIUM [Suspect]
     Active Substance: METHOTREXATE SODIUM
     Indication: Still^s disease
     Dosage: 15 MILLIGRAM, QW
     Route: 058
  3. ETANERCEPT [Suspect]
     Active Substance: ETANERCEPT
     Indication: Still^s disease
     Dosage: UNKNOWN
     Route: 065
  4. BARICITINIB [Suspect]
     Active Substance: BARICITINIB
     Indication: Still^s disease
     Dosage: 4 MILLIGRAM, QD
     Route: 048
  5. ADALIMUMAB [Suspect]
     Active Substance: ADALIMUMAB\ISOPROPYL ALCOHOL
     Indication: Still^s disease
     Dosage: UNKNOWN
     Route: 065
  6. TOCILIZUMAB [Concomitant]
     Active Substance: TOCILIZUMAB
     Indication: Still^s disease
     Dosage: UNKNOWN
     Route: 065
  7. ANAKINRA [Concomitant]
     Active Substance: ANAKINRA
     Indication: Still^s disease
     Dosage: UNKNOWN
     Route: 065
  8. THALIDOMIDE [Concomitant]
     Active Substance: THALIDOMIDE
     Indication: Still^s disease
     Dosage: UNKNOWN
     Route: 065
  9. ABATACEPT [Concomitant]
     Active Substance: ABATACEPT
     Indication: Still^s disease
     Dosage: UNKNOWN
     Route: 065
  10. CYCLOSPORINE [Concomitant]
     Active Substance: CYCLOSPORINE
     Indication: Still^s disease
     Dosage: UNKNOWN
     Route: 065

REACTIONS (7)
  - Haemophagocytic lymphohistiocytosis [Unknown]
  - COVID-19 [Unknown]
  - Still^s disease [Unknown]
  - Thrombotic microangiopathy [Unknown]
  - Steroid dependence [Unknown]
  - Drug ineffective for unapproved indication [Unknown]
  - Off label use [Unknown]
